FAERS Safety Report 7420959-8 (Version None)
Quarter: 2011Q2

REPORT INFORMATION
  Report Type: 
  Country: None (occurrence: None)
  Receive Date: 20110408
  Receipt Date: 20110324
  Transmission Date: 20111010
  Serious: Yes (Death, Hospitalization)
  Sender: FDA-Public Use
  Company Number: 2011000871

PATIENT
  Age: 70 Year
  Sex: Female

DRUGS (1)
  1. TARCEVA [Suspect]
     Indication: LUNG ADENOCARCINOMA
     Dosage: 150 MG, QD, ORAL
     Route: 048
     Dates: start: 20080701, end: 20090601

REACTIONS (4)
  - CYSTITIS HAEMORRHAGIC [None]
  - MALAISE [None]
  - RASH [None]
  - DISEASE PROGRESSION [None]
